FAERS Safety Report 11131523 (Version 2)
Quarter: 2015Q4

REPORT INFORMATION
  Report Type: Spontaneous
  Country: JP (occurrence: JP)
  Receive Date: 20150522
  Receipt Date: 20151027
  Transmission Date: 20160304
  Serious: Yes (Hospitalization, Other)
  Sender: FDA-Public Use
  Company Number: JP-PFIZER INC-2015141131

PATIENT
  Age: 31 Year
  Sex: Male
  Weight: 74.5 kg

DRUGS (2)
  1. LYRICA [Suspect]
     Active Substance: PREGABALIN
     Dosage: UNK
     Route: 048
  2. LYRICA [Suspect]
     Active Substance: PREGABALIN
     Dosage: 14400 MG, UNK
     Route: 048
     Dates: start: 20150421, end: 20150421

REACTIONS (5)
  - Suicide attempt [Recovering/Resolving]
  - Altered state of consciousness [Recovered/Resolved]
  - Dyskinesia [Recovered/Resolved]
  - Overdose [Unknown]
  - Mental disorder [Unknown]

NARRATIVE: CASE EVENT DATE: 20150421
